FAERS Safety Report 8093416-6 (Version None)
Quarter: 2012Q1

REPORT INFORMATION
  Report Type: 
  Country: None (occurrence: None)
  Receive Date: 20120131
  Receipt Date: 20111107
  Transmission Date: 20120608
  Serious: Yes (Hospitalization, Disabling)
  Sender: FDA-Public Use
  Company Number: NO-AMGEN-NORSP2011017040

PATIENT
  Age: 75 Year
  Sex: Female

DRUGS (6)
  1. PROLIA [Suspect]
     Indication: OSTEOPOROSIS POSTMENOPAUSAL
     Dosage: 60 MG, Q6MO
     Route: 058
     Dates: start: 20110303
  2. SERETIDE [Concomitant]
     Indication: LUNG DISORDER
     Dosage: UNK UNK, BID
     Route: 055
  3. CALCIGRAN FORTE [Concomitant]
  4. SPIRIVA [Concomitant]
     Dosage: 18 MUG, UNK
     Route: 055
  5. VENTOLIN [Concomitant]
     Dosage: UNK UNK, QD
     Route: 055
  6. NORVASC [Concomitant]
     Dosage: 10 MG, UNK

REACTIONS (21)
  - INAPPROPRIATE ANTIDIURETIC HORMONE SECRETION [None]
  - HEADACHE [None]
  - PARAESTHESIA [None]
  - URINARY INCONTINENCE [None]
  - ACTIVITIES OF DAILY LIVING IMPAIRED [None]
  - POLLAKIURIA [None]
  - PYREXIA [None]
  - SKIN DISCOLOURATION [None]
  - CATARACT [None]
  - RASH [None]
  - UPPER RESPIRATORY TRACT INFECTION [None]
  - DEPRESSION [None]
  - MOUTH ULCERATION [None]
  - PAIN IN EXTREMITY [None]
  - ABDOMINAL PAIN UPPER [None]
  - FLUSHING [None]
  - BONE PAIN [None]
  - HYPOAESTHESIA [None]
  - NAUSEA [None]
  - PRURITUS [None]
  - WEIGHT DECREASED [None]
